FAERS Safety Report 8588469-2 (Version None)
Quarter: 2012Q3

REPORT INFORMATION
  Report Type: 
  Country: None (occurrence: None)
  Receive Date: 20120813
  Receipt Date: 20120806
  Transmission Date: 20120928
  Serious: Yes (Hospitalization)
  Sender: FDA-Public Use
  Company Number: AU-SANOFI-AVENTIS-2012SA056086

PATIENT
  Age: 66 Year
  Sex: Male

DRUGS (9)
  1. DIAMICRON [Concomitant]
  2. METFORMIN HCL [Concomitant]
  3. INDAPAMIDE [Concomitant]
  4. ATORVASTATIN [Concomitant]
  5. TENORMIN [Concomitant]
  6. ESOMEPRAZOLE [Concomitant]
  7. VENLAFAXINE HYDROCHOLRIDE [Concomitant]
  8. LANTUS [Suspect]
     Route: 058
     Dates: start: 20100801
  9. PERINDOPRIL ERBUMINE [Concomitant]

REACTIONS (4)
  - SYNCOPE [None]
  - GASTRIC CANCER [None]
  - MOBILITY DECREASED [None]
  - HYPOGLYCAEMIA [None]
